FAERS Safety Report 5720353-1 (Version None)
Quarter: 2008Q2

REPORT INFORMATION
  Report Type: 
  Country: None (occurrence: None)
  Receive Date: 20080423
  Receipt Date: 20070618
  Transmission Date: 20081010
  Serious: Yes (Hospitalization)
  Sender: FDA-Public Use
  Company Number: 242288

PATIENT
  Age: 74 Year
  Sex: Male

DRUGS (10)
  1. AVASTIN [Suspect]
     Indication: COLORECTAL CANCER METASTATIC
     Dosage: 1100 MG, INTRAVENOUS
     Route: 042
     Dates: start: 20070130
  2. FLUOROURACIL [Concomitant]
  3. METOPROLOL TARTRATE [Concomitant]
  4. HYDROCHLOROTHIAZIDE [Concomitant]
  5. LISINOPRIL [Concomitant]
  6. LIPITOR [Concomitant]
  7. FLOMAX [Concomitant]
  8. PLAVIX [Concomitant]
  9. MIRALAX [Concomitant]
  10. ASCORBIC ACID [Concomitant]

REACTIONS (3)
  - CHOLANGITIS [None]
  - CHOLECYSTITIS [None]
  - RENAL FAILURE ACUTE [None]
